FAERS Safety Report 4590523-7 (Version None)
Quarter: 2005Q1

REPORT INFORMATION
  Report Type: 
  Country: None (occurrence: None)
  Receive Date: 20050224
  Receipt Date: 20040407
  Transmission Date: 20050727
  Serious: Yes (Congenital Anomaly)
  Sender: FDA-Public Use
  Company Number: BR-ROCHE-364062

PATIENT
  Sex: Male
  Weight: 3.6 kg

DRUGS (3)
  1. ROACUTAN [Suspect]
     Indication: ACNE
     Dates: start: 20030715
  2. ROACUTAN [Suspect]
     Dates: end: 20040115
  3. DIANE [Concomitant]
     Indication: CONTRACEPTION
     Dates: start: 20030615, end: 20031215

REACTIONS (3)
  - CONGENITAL CARDIOVASCULAR ANOMALY [None]
  - DRUG EXPOSURE DURING PREGNANCY [None]
  - EAR MALFORMATION [None]
